FAERS Safety Report 4818910-X (Version None)
Quarter: 2005Q4

REPORT INFORMATION
  Report Type: 
  Country: None (occurrence: None)
  Receive Date: 20051101
  Receipt Date: 20051019
  Transmission Date: 20060501
  Serious: Yes (Other)
  Sender: FDA-Public Use
  Company Number: 2005085670

PATIENT
  Age: 84 Year
  Sex: Female
  Weight: 46.8 kg

DRUGS (7)
  1. DIFLUCAN [Suspect]
     Indication: ORAL FUNGAL INFECTION
     Dosage: 100 MG (100 MG, 1 IN 1 D),ORAL
     Route: 048
     Dates: start: 20050601, end: 20050605
  2. PREDNISOLONE [Concomitant]
  3. MUCOSTA (REBAMIPIDE) [Concomitant]
  4. MUCODYNE (CARBOCISTEINE) [Concomitant]
  5. KLARICID (CLARTITHROMYCIN) [Concomitant]
  6. ALFAROL (ALFACALCIDOL) [Concomitant]
  7. FUNGIZONE [Concomitant]

REACTIONS (1)
  - PLATELET COUNT DECREASED [None]
